FAERS Safety Report 19003755 (Version 1)
Quarter: 2021Q1

REPORT INFORMATION
  Report Type: Spontaneous
  Country: DE (occurrence: DE)
  Receive Date: 20210312
  Receipt Date: 20210312
  Transmission Date: 20210420
  Serious: Yes (Death, Hospitalization)
  Sender: FDA-Public Use
  Company Number: DE-TEVA-2021-DE-1888077

PATIENT
  Age: 5 Year
  Sex: Male
  Weight: 17 kg

DRUGS (8)
  1. ENALAPRIL [Concomitant]
     Active Substance: ENALAPRIL
     Indication: SECONDARY HYPERTENSION
     Dosage: 3 MILLIGRAM DAILY;
     Dates: start: 201410, end: 20200104
  2. ATENOLOL. [Concomitant]
     Active Substance: ATENOLOL
     Indication: SECONDARY HYPERTENSION
     Dosage: 12.5 MILLIGRAM DAILY;
     Dates: start: 201410, end: 20200104
  3. FLUCONAZOL SUSPENSION [Concomitant]
     Indication: INFECTION PROPHYLAXIS
     Dosage: 50 MILLIGRAM DAILY; SUSPENSION
     Dates: start: 201410, end: 20200104
  4. CICLOSPORIN A [Suspect]
     Active Substance: CYCLOSPORINE
     Indication: GRAFT VERSUS HOST DISEASE
     Dosage: 80 MILLIGRAM DAILY;
     Route: 048
     Dates: start: 201410, end: 20200104
  5. BRIVARACETAM 10MG/ML [Concomitant]
     Indication: LENNOX-GASTAUT SYNDROME
     Dosage: 170 MILLIGRAM DAILY;
     Dates: start: 20190701, end: 20200104
  6. MYCOPHENOLATE MOFETIL. [Suspect]
     Active Substance: MYCOPHENOLATE MOFETIL
     Indication: GRAFT VERSUS HOST DISEASE
     Dosage: 800 MILLIGRAM DAILY;
     Route: 048
     Dates: start: 201803, end: 20200104
  7. FYCOMPA 0.5ML/ML SUSPENSION [Concomitant]
     Indication: LENNOX-GASTAUT SYNDROME
     Dosage: .5 MILLIGRAM DAILY; SUSPENSION
     Dates: start: 20191211, end: 20191217
  8. COTRIMOXAZOL 240MG/5ML [Concomitant]
     Indication: INFECTION PROPHYLAXIS
     Dosage: 80 MILLIGRAM DAILY;
     Dates: start: 201410, end: 20200104

REACTIONS (3)
  - Respiratory failure [Fatal]
  - Pneumonia pseudomonal [Fatal]
  - Bacterial infection [Fatal]

NARRATIVE: CASE EVENT DATE: 20191218
